FAERS Safety Report 15104232 (Version 1)
Quarter: 2018Q3

REPORT INFORMATION
  Report Type: Spontaneous
  Country: US (occurrence: US)
  Receive Date: 20180703
  Receipt Date: 20180703
  Transmission Date: 20181010
  Serious: Yes (Other)
  Sender: FDA-Public Use
  Company Number: US-JNJFOC-20180701385

PATIENT
  Sex: Female
  Weight: 95.26 kg

DRUGS (6)
  1. RITALIN [Concomitant]
     Active Substance: METHYLPHENIDATE HYDROCHLORIDE
     Route: 065
  2. AMITIZA [Concomitant]
     Active Substance: LUBIPROSTONE
     Route: 065
  3. ZOLOFT [Concomitant]
     Active Substance: SERTRALINE HYDROCHLORIDE
     Route: 065
  4. PRISTIQ EXTENDED?RELEASE [Concomitant]
     Active Substance: DESVENLAFAXINE SUCCINATE
     Route: 065
  5. SIMPONI [Suspect]
     Active Substance: GOLIMUMAB
     Indication: RHEUMATOID ARTHRITIS
     Route: 058
     Dates: start: 2018, end: 2018
  6. VASOTEC [Concomitant]
     Active Substance: ENALAPRIL MALEATE
     Route: 065

REACTIONS (1)
  - Lyme disease [Not Recovered/Not Resolved]

NARRATIVE: CASE EVENT DATE: 2018
